FAERS Safety Report 5668465-5 (Version None)
Quarter: 2008Q1

REPORT INFORMATION
  Report Type: 
  Country: None (occurrence: None)
  Receive Date: 20080315
  Receipt Date: 20080221
  Transmission Date: 20080703
  Serious: No
  Sender: FDA-Public Use
  Company Number: US-ABBOTT-08P-163-0439475-00

PATIENT
  Sex: Male

DRUGS (7)
  1. HUMIRA [Suspect]
     Indication: CROHN'S DISEASE
     Route: 058
     Dates: start: 20080221
  2. MONTELUKAST SODIUM [Concomitant]
     Indication: ASTHMA
     Route: 048
  3. SALBUTAMOL SULFATE [Concomitant]
     Indication: ASTHMA
     Route: 055
  4. SERETIDE [Concomitant]
     Indication: ASTHMA
     Route: 055
  5. METHYLPHENIDATE HCL [Concomitant]
     Indication: DRUG USE FOR UNKNOWN INDICATION
     Route: 048
  6. TRIAMCINOLONE ACETONIDE [Concomitant]
     Indication: ASTHMA
     Route: 055
  7. MESALAMINE [Concomitant]
     Indication: CROHN'S DISEASE
     Route: 048

REACTIONS (1)
  - ACCIDENTAL EXPOSURE [None]
